FAERS Safety Report 6419561-6 (Version None)
Quarter: 2009Q4

REPORT INFORMATION
  Report Type: 
  Country: None (occurrence: None)
  Receive Date: 20091027
  Receipt Date: 20091012
  Transmission Date: 20100525
  Serious: Yes (Hospitalization, Other)
  Sender: FDA-Public Use
  Company Number: 2009003113

PATIENT
  Age: 72 Year
  Sex: Male
  Weight: 71.5 kg

DRUGS (10)
  1. ERLOTINIB HYDROCHLORIDE [Suspect]
     Indication: LUNG ADENOCARCINOMA
     Dosage: 150 MG, QD, ORAL
     Route: 048
     Dates: start: 20090608, end: 20090620
  2. ZOLPIDEM TARTRATE [Concomitant]
  3. LOXONIN (LOXOPROFEN SODIUM) [Concomitant]
  4. MUCOSTA (REBAMIPIDE)Q [Concomitant]
  5. NAUZELIN (DOMPERIDONE) [Concomitant]
  6. PROTECADIN [Concomitant]
  7. CARBOPLATIN [Concomitant]
  8. PACLITAXEL [Concomitant]
  9. CISPLATIN [Concomitant]
  10. VINORELBINE (VINORELBINE) [Concomitant]

REACTIONS (6)
  - BLOOD ALKALINE PHOSPHATASE INCREASED [None]
  - BLOOD LACTATE DEHYDROGENASE INCREASED [None]
  - DIARRHOEA [None]
  - DISEASE PROGRESSION [None]
  - LUNG ADENOCARCINOMA [None]
  - WHITE BLOOD CELL COUNT INCREASED [None]
